FAERS Safety Report 11686617 (Version 2)
Quarter: 2015Q4

REPORT INFORMATION
  Report Type: Spontaneous
  Country: US (occurrence: US)
  Receive Date: 20151030
  Receipt Date: 20151228
  Transmission Date: 20160304
  Serious: No
  Sender: FDA-Public Use
  Company Number: US-PFIZER INC-2015307857

PATIENT
  Age: 53 Year
  Sex: Female

DRUGS (3)
  1. LYRICA [Suspect]
     Active Substance: PREGABALIN
     Indication: NEURALGIA
     Dosage: 10 MG, 2X/DAY
     Dates: start: 201305
  2. ETOLAC [Concomitant]
     Dosage: UNK
     Dates: start: 201305
  3. BUTRANS [Concomitant]
     Active Substance: BUPRENORPHINE
     Dosage: 10 ?G, UNK
     Dates: start: 201407

REACTIONS (1)
  - Drug effect incomplete [Unknown]
